FAERS Safety Report 18794391 (Version 1)
Quarter: 2021Q1

REPORT INFORMATION
  Report Type: Spontaneous
  Country: None (occurrence: US)
  Receive Date: 20210127
  Receipt Date: 20210127
  Transmission Date: 20210419
  Serious: Yes (Death, Life-Threatening, Hospitalization, Other)
  Sender: FDA-Public Use
  Company Number: US-SA-2021SA002597

PATIENT
  Age: 76 Year
  Sex: Female

DRUGS (1)
  1. DIPHENHYDRAMINE/PARACETAMOL [Suspect]
     Active Substance: ACETAMINOPHEN\DIPHENHYDRAMINE
     Dosage: 2 AND 6 TABLETS OF 500 MG

REACTIONS (11)
  - Hepatic function abnormal [Fatal]
  - Hallucination, visual [Fatal]
  - Hepatic failure [Fatal]
  - Renal impairment [Fatal]
  - Escherichia urinary tract infection [Fatal]
  - Drug-induced liver injury [Fatal]
  - Transaminases increased [Fatal]
  - Hepatic encephalopathy [Fatal]
  - Urosepsis [Fatal]
  - Blood lactic acid increased [Fatal]
  - Condition aggravated [Fatal]
